FAERS Safety Report 5532464-4 (Version None)
Quarter: 2007Q4

REPORT INFORMATION
  Report Type: 
  Country: None (occurrence: None)
  Receive Date: 20071203
  Receipt Date: 20071122
  Transmission Date: 20080405
  Serious: Yes (Life-Threatening, Hospitalization)
  Sender: FDA-Public Use
  Company Number: JP-PFIZER INC-2007090931

PATIENT
  Sex: Male
  Weight: 80 kg

DRUGS (7)
  1. CABERGOLINE [Suspect]
     Indication: DEPRESSION
     Dates: start: 20070403, end: 20071019
  2. LITHIUM CARBONATE [Suspect]
     Route: 048
  3. TRYPTANOL [Suspect]
     Route: 048
  4. RIVOTRIL [Concomitant]
     Route: 048
  5. EPADEL [Concomitant]
     Route: 048
  6. ALOSITOL [Concomitant]
  7. ROHYPNOL [Concomitant]
     Route: 048

REACTIONS (4)
  - CARDIAC FAILURE [None]
  - CARDIAC VALVE DISEASE [None]
  - CONGESTIVE CARDIOMYOPATHY [None]
  - PLEURAL EFFUSION [None]
